FAERS Safety Report 6385687-9 (Version None)
Quarter: 2009Q4

REPORT INFORMATION
  Report Type: 
  Country: None (occurrence: None)
  Receive Date: 20091002
  Receipt Date: 20081024
  Transmission Date: 20100525
  Serious: No
  Sender: FDA-Public Use
  Company Number: US-ASTRAZENECA-2008UW23876

PATIENT
  Age: 71 Year
  Sex: Female

DRUGS (4)
  1. ARIMIDEX [Suspect]
     Indication: BREAST CANCER
     Route: 048
     Dates: start: 20071001
  2. COZAAR [Concomitant]
  3. LEVOTHYROXINE SODIUM [Concomitant]
  4. PRAVASTATIN [Concomitant]

REACTIONS (3)
  - FLATULENCE [None]
  - GASTROINTESTINAL DISORDER [None]
  - INSOMNIA [None]
